FAERS Safety Report 6046975-9 (Version None)
Quarter: 2009Q1

REPORT INFORMATION
  Report Type: 
  Country: None (occurrence: None)
  Receive Date: 20090115
  Receipt Date: 20090105
  Transmission Date: 20090719
  Serious: No
  Sender: FDA-Public Use
  Company Number: 2009-189249-NL

PATIENT
  Age: 63 Year
  Sex: Male

DRUGS (7)
  1. TICE BCG [Suspect]
     Dosage: INTRAVESICAL
     Route: 043
     Dates: start: 20070611, end: 20070611
  2. TICE BCG [Suspect]
     Dosage: INTRAVESICAL
     Route: 043
     Dates: start: 20070618, end: 20070618
  3. TICE BCG [Suspect]
     Dosage: INTRAVESICAL
     Route: 043
     Dates: start: 20070823, end: 20070823
  4. TICE BCG [Suspect]
     Dosage: INTRAVESICAL
     Route: 043
     Dates: start: 20070830, end: 20070830
  5. TICE BCG [Suspect]
     Dosage: INTRAVESICAL
     Route: 043
     Dates: start: 20070906, end: 20070906
  6. TICE BCG [Suspect]
     Dosage: INTRAVESICAL
     Route: 043
     Dates: start: 20070919, end: 20070919
  7. TICE BCG [Suspect]
     Dosage: INTRAVESICAL
     Route: 043
     Dates: start: 20070920, end: 20070920

REACTIONS (1)
  - BLADDER CANCER RECURRENT [None]
